FAERS Safety Report 6512373-4 (Version None)
Quarter: 2009Q4

REPORT INFORMATION
  Report Type: 
  Country: None (occurrence: None)
  Receive Date: 20091222
  Receipt Date: 20091215
  Transmission Date: 20100525
  Serious: Yes (Other)
  Sender: FDA-Public Use
  Company Number: JP-PFIZER INC-2009310280

PATIENT
  Age: 76 Year

DRUGS (1)
  1. SOLU-MEDROL [Suspect]
     Dosage: 0.5 G, UNK
     Route: 042
     Dates: start: 20091207, end: 20091212

REACTIONS (1)
  - LIVER DISORDER [None]
